FAERS Safety Report 19462811 (Version 1)
Quarter: 2021Q2

REPORT INFORMATION
  Report Type: Spontaneous
  Country: PL (occurrence: PL)
  Receive Date: 20210625
  Receipt Date: 20210625
  Transmission Date: 20210717
  Serious: Yes (Hospitalization, Other)
  Sender: FDA-Public Use
  Company Number: NVSC2021PL139034

PATIENT
  Age: 65 Year
  Sex: Male

DRUGS (30)
  1. APIXABAN [Suspect]
     Active Substance: APIXABAN
     Dosage: 5 MG, QD,2.5 MG, BID
     Route: 065
     Dates: start: 202103
  2. SACUBITRIL,VALSARTAN [Suspect]
     Active Substance: SACUBITRIL\VALSARTAN
     Dosage: UNK, 24/26 MG
     Route: 065
     Dates: start: 20191017
  3. METFORMIN [Suspect]
     Active Substance: METFORMIN HYDROCHLORIDE
     Indication: PRODUCT USED FOR UNKNOWN INDICATION
     Dosage: 3 DF, QD,1 DF, TID
     Route: 065
     Dates: start: 20190811
  4. EPLERENONE. [Suspect]
     Active Substance: EPLERENONE
     Dosage: 50 MG
     Route: 065
  5. PANTOPRAZOLE SODIUM SESQUIHYDRATE [Suspect]
     Active Substance: PANTOPRAZOLE SODIUM
     Indication: PRODUCT USED FOR UNKNOWN INDICATION
     Dosage: UNK
     Route: 065
     Dates: start: 20190811
  6. CARVEDILOL. [Suspect]
     Active Substance: CARVEDILOL
     Dosage: UNK,12.5 MG?0?6.25 MG
     Route: 065
  7. ATORVASTATIN [Suspect]
     Active Substance: ATORVASTATIN
     Dosage: 40 MG
     Route: 065
     Dates: start: 20190811
  8. APIXABAN [Suspect]
     Active Substance: APIXABAN
     Indication: CEREBROVASCULAR ACCIDENT PROPHYLAXIS
     Dosage: 5 MG, QD,2.5 MG, BID
     Route: 065
     Dates: start: 20191115
  9. APIXABAN [Suspect]
     Active Substance: APIXABAN
     Dosage: 5 MG, QD,2.5 MG, BID
     Route: 065
     Dates: start: 202010
  10. TORASEMIDE [Suspect]
     Active Substance: TORSEMIDE
     Indication: PRODUCT USED FOR UNKNOWN INDICATION
     Dosage: 10 MG
     Route: 065
  11. BISOPROLOL [Suspect]
     Active Substance: BISOPROLOL
     Indication: PRODUCT USED FOR UNKNOWN INDICATION
     Dosage: 2.5 MG
     Route: 065
     Dates: start: 20190811
  12. METFORMIN [Suspect]
     Active Substance: METFORMIN HYDROCHLORIDE
     Dosage: 1 DF, QD
     Route: 065
     Dates: start: 202103
  13. FUROSEMIDE. [Suspect]
     Active Substance: FUROSEMIDE
     Dosage: 40 MG, QD,20 MG, BID
     Route: 065
     Dates: start: 20191017
  14. TORASEMIDE [Suspect]
     Active Substance: TORSEMIDE
     Dosage: 5 MG
     Route: 065
     Dates: start: 20190811
  15. ATORVASTATIN [Suspect]
     Active Substance: ATORVASTATIN
     Dosage: 20 MG
     Route: 065
  16. ACETYLSALICYLIC ACID [Suspect]
     Active Substance: ASPIRIN
     Dosage: 75 MG
     Route: 065
     Dates: start: 20191015
  17. EPLERENONE. [Suspect]
     Active Substance: EPLERENONE
     Dosage: 50 MG
     Route: 065
     Dates: start: 202103
  18. CLOPIDOGREL BISULFATE. [Suspect]
     Active Substance: CLOPIDOGREL BISULFATE
     Indication: PRODUCT USED FOR UNKNOWN INDICATION
     Dosage: 75 MG
     Route: 065
     Dates: start: 20190811
  19. RAMIPRIL. [Suspect]
     Active Substance: RAMIPRIL
     Indication: PRODUCT USED FOR UNKNOWN INDICATION
     Dosage: 2.5 MG
     Route: 065
     Dates: start: 20190811
  20. ACETYLSALICYLIC ACID [Suspect]
     Active Substance: ASPIRIN
     Indication: PRODUCT USED FOR UNKNOWN INDICATION
     Dosage: 75 MG
     Route: 065
     Dates: start: 20190811
  21. FUROSEMIDE. [Suspect]
     Active Substance: FUROSEMIDE
     Indication: PRODUCT USED FOR UNKNOWN INDICATION
     Dosage: 80 MG, QD,40 MG, BID
     Route: 065
  22. SACUBITRIL,VALSARTAN [Suspect]
     Active Substance: SACUBITRIL\VALSARTAN
     Indication: PRODUCT USED FOR UNKNOWN INDICATION
     Dosage: UNK, 24/26 MG
     Route: 065
     Dates: start: 202103
  23. EPLERENONE. [Suspect]
     Active Substance: EPLERENONE
     Indication: PRODUCT USED FOR UNKNOWN INDICATION
     Dosage: 25 MG
     Route: 065
     Dates: start: 20190811
  24. CARVEDILOL. [Suspect]
     Active Substance: CARVEDILOL
     Indication: PRODUCT USED FOR UNKNOWN INDICATION
     Dosage: 25 MG, QD
     Route: 065
  25. FUROSEMIDE. [Suspect]
     Active Substance: FUROSEMIDE
     Dosage: 40 MG, QD,40 MG, QD
     Route: 065
     Dates: start: 202010
  26. TORASEMIDE [Suspect]
     Active Substance: TORSEMIDE
     Dosage: 10 MG
     Route: 065
     Dates: start: 202103
  27. ATORVASTATIN [Suspect]
     Active Substance: ATORVASTATIN
     Indication: PRODUCT USED FOR UNKNOWN INDICATION
     Dosage: 40 MG
     Route: 065
     Dates: start: 202103
  28. ACETYLSALICYLIC ACID [Suspect]
     Active Substance: ASPIRIN
     Dosage: 75 MG
     Route: 065
     Dates: start: 20191115
  29. CARVEDILOL. [Suspect]
     Active Substance: CARVEDILOL
     Dosage: 37.5 MG, QD
     Route: 065
     Dates: start: 202103
  30. DAPAGLIFLOZIN. [Concomitant]
     Active Substance: DAPAGLIFLOZIN
     Indication: PRODUCT USED FOR UNKNOWN INDICATION
     Dosage: 10 MG
     Route: 065
     Dates: start: 202103

REACTIONS (13)
  - Haemoglobin decreased [Unknown]
  - N-terminal prohormone brain natriuretic peptide increased [Unknown]
  - Mitral valve calcification [Unknown]
  - Mitral valve incompetence [Unknown]
  - Ejection fraction decreased [Unknown]
  - Glomerular filtration rate decreased [Unknown]
  - Blood pressure decreased [Unknown]
  - Mitral valve thickening [Unknown]
  - Heart rate decreased [Unknown]
  - Platelet count decreased [Unknown]
  - Pulmonary oedema [Unknown]
  - Concomitant disease aggravated [Unknown]
  - Glycosylated haemoglobin increased [Unknown]

NARRATIVE: CASE EVENT DATE: 201911
